FAERS Safety Report 9220480 (Version 1)
Quarter: 2013Q1

REPORT INFORMATION
  Report Type: Spontaneous
  Country: US (occurrence: None)
  Receive Date: 20120830
  Receipt Date: 20120830
  Transmission Date: 20140127
  Serious: Yes (Other)
  Sender: FDA-Public Use
  Company Number: PHEH2012US009667

PATIENT
  Age: 70 Year
  Sex: Female
  Weight: 55.3 kg

DRUGS (3)
  1. SANDOSTATIN LAR DEPOT (OCTREOTIDE WITH POLY(D L-LACTIDE-CO-GLYCOLIDE)) SUSPENSION [Suspect]
     Indication: NEUROENDOCRINE TUMOUR
     Route: 030
     Dates: start: 20090916
  2. XELODA (CAPECITABINE) [Suspect]
     Indication: NEUROENDOCRINE TUMOUR
     Dates: start: 200912
  3. TEMODAR (TEMOZOLOMIDE) [Suspect]
     Indication: NEUROENDOCRINE TUMOUR
     Dates: start: 200912

REACTIONS (8)
  - Disease progression [None]
  - Dry skin [None]
  - Paraesthesia [None]
  - Malaise [None]
  - Dry eye [None]
  - Eye pain [None]
  - Pruritus [None]
  - Vomiting [None]
